FAERS Safety Report 9689468 (Version 2)
Quarter: 2013Q4

REPORT INFORMATION
  Report Type: Report from Study
  Country: JP (occurrence: JP)
  Receive Date: 20131114
  Receipt Date: 20131114
  Transmission Date: 20140711
  Serious: Yes (Death, Other)
  Sender: FDA-Public Use
  Company Number: JP-TAKEDA-2013TJP001978

PATIENT
  Age: 79 Year
  Sex: Male
  Weight: 66 kg

DRUGS (8)
  1. LANSOPRAZOLE [Suspect]
     Indication: PROPHYLAXIS AGAINST GASTROINTESTINAL ULCER
     Dosage: 15 MG, QD
     Route: 048
     Dates: start: 20120824, end: 20130218
  2. BAYASPIRIN [Concomitant]
     Indication: THROMBOSIS PROPHYLAXIS
     Dosage: 100 MG,  1 DAYS
     Route: 048
     Dates: end: 20130218
  3. AMLODIPINE                         /00972402/ [Concomitant]
     Dosage: 5 MG, 1 DAYS
     Route: 048
  4. PREMINENT [Concomitant]
     Dosage: 1 DF, 1 DAYS
     Route: 048
  5. URIEF [Concomitant]
     Dosage: 8 MG, 1 DAYS
     Route: 048
  6. LOXONIN [Concomitant]
     Dosage: UNK
     Route: 062
     Dates: start: 20120824
  7. MOHRUS [Concomitant]
     Dosage: 1 DF, 1 DAYS
     Route: 065
  8. LYRICA [Concomitant]
     Dosage: 75 MG, 1 DAYS
     Route: 048

REACTIONS (2)
  - Liver disorder [Fatal]
  - Bile duct cancer [Fatal]
